FAERS Safety Report 10051016 (Version 2)
Quarter: 2014Q2

REPORT INFORMATION
  Report Type: Spontaneous
  Country: JP (occurrence: None)
  Receive Date: 20140328
  Receipt Date: 20140414
  Transmission Date: 20141212
  Serious: Yes (Hospitalization)
  Sender: FDA-Public Use
  Company Number: SP07631

PATIENT
  Age: 70 Year
  Sex: Male

DRUGS (5)
  1. MOVIPREP (SOLUTION) [Suspect]
     Indication: BOWEL PREPARATION
     Route: 048
     Dates: start: 20140311, end: 20140311
  2. LAXOBERON [Concomitant]
     Indication: BOWEL PREPARATION
  3. ADJUST-A [Concomitant]
  4. MIYA BM [Concomitant]
  5. FAMOTIDINE [Concomitant]

REACTIONS (4)
  - Intestinal perforation [None]
  - Vomiting [None]
  - Abdominal pain [None]
  - Feeling cold [None]
